FAERS Safety Report 7482682-3 (Version None)
Quarter: 2011Q2

REPORT INFORMATION
  Report Type: 
  Country: None (occurrence: None)
  Receive Date: 20110516
  Receipt Date: 20110510
  Transmission Date: 20111010
  Serious: Yes (Other)
  Sender: FDA-Public Use
  Company Number: DE-ABBOTT-11P-062-0724986-00

PATIENT
  Age: 45 Year
  Sex: Female
  Weight: 33.2 kg

DRUGS (24)
  1. IRON-III-ION [Concomitant]
     Dates: start: 20090520, end: 20100109
  2. METOPROLOLSUCCINAT [Concomitant]
     Indication: PRODUCT USED FOR UNKNOWN INDICATION
     Dates: start: 20090525
  3. L-THYROXIN-NA-X WASSER [Concomitant]
     Indication: PRODUCT USED FOR UNKNOWN INDICATION
     Dates: start: 20090611
  4. ZEMPLAR [Suspect]
     Indication: RENAL FAILURE CHRONIC
     Route: 042
     Dates: start: 20091218
  5. ERYTHROPOETIN [Concomitant]
     Indication: PRODUCT USED FOR UNKNOWN INDICATION
     Dosage: PREFILLED SYRINGE 4000, 12000IU PER WEEK
     Dates: start: 20090504
  6. IRON-III-ION [Concomitant]
     Indication: PRODUCT USED FOR UNKNOWN INDICATION
     Dosage: 3X62.5MG/5ML PER WEEK
     Dates: start: 20090520
  7. AMPHOTERICIN B [Concomitant]
     Indication: PRODUCT USED FOR UNKNOWN INDICATION
     Dates: start: 20091008
  8. ACETYLCYSTEINE [Concomitant]
     Indication: PRODUCT USED FOR UNKNOWN INDICATION
     Dates: start: 20091105
  9. PANTOPRAZOL [Concomitant]
     Indication: PRODUCT USED FOR UNKNOWN INDICATION
     Dates: start: 20090201
  10. AMLODIPINE [Concomitant]
     Indication: PRODUCT USED FOR UNKNOWN INDICATION
     Dates: start: 20090602
  11. FUROSEMID [Concomitant]
     Indication: PRODUCT USED FOR UNKNOWN INDICATION
     Dates: start: 20091124
  12. RENALGEL [Concomitant]
     Dates: start: 20100930
  13. MORPHIUMSULFATE 5 [Concomitant]
     Indication: PRODUCT USED FOR UNKNOWN INDICATION
     Dates: start: 20090525
  14. COLECALCIFEROL [Concomitant]
     Indication: PRODUCT USED FOR UNKNOWN INDICATION
     Dosage: 40000IU QS
     Dates: start: 20100119
  15. SEVELAMER [Concomitant]
     Indication: PRODUCT USED FOR UNKNOWN INDICATION
     Dates: start: 20100112
  16. ASPIRIN [Concomitant]
     Indication: PRODUCT USED FOR UNKNOWN INDICATION
     Dates: start: 20090101
  17. EPOETIN ALFA 3000IU TIS [Concomitant]
     Indication: PRODUCT USED FOR UNKNOWN INDICATION
     Dates: start: 20100112
  18. RENALGEL [Concomitant]
     Indication: PRODUCT USED FOR UNKNOWN INDICATION
     Dates: start: 20100908
  19. ALPHACALCIDOL [Concomitant]
     Indication: PRODUCT USED FOR UNKNOWN INDICATION
     Route: 048
  20. ZOPLICON [Concomitant]
     Indication: PRODUCT USED FOR UNKNOWN INDICATION
  21. AMIODARON HYDROCHLORID [Concomitant]
     Indication: PRODUCT USED FOR UNKNOWN INDICATION
     Dates: start: 20090512
  22. IRON -III-ION [Concomitant]
     Dosage: 62.5MG TIS
     Dates: start: 20090520, end: 20100109
  23. EPOETIN ALFA [Concomitant]
     Indication: PRODUCT USED FOR UNKNOWN INDICATION
     Dates: start: 20090504, end: 20100109
  24. EPOETIN ALFA [Concomitant]
     Dates: start: 20100112

REACTIONS (5)
  - HEPATIC CIRRHOSIS [None]
  - AORTIC ANEURYSM [None]
  - PERIPHERAL ARTERIAL OCCLUSIVE DISEASE [None]
  - CATHETER SITE INFECTION [None]
  - GASTRITIS EROSIVE [None]
